FAERS Safety Report 8613247-5 (Version None)
Quarter: 2012Q3

REPORT INFORMATION
  Report Type: 
  Country: None (occurrence: None)
  Receive Date: 20120822
  Receipt Date: 20120802
  Transmission Date: 20120928
  Serious: Yes (Other)
  Sender: FDA-Public Use
  Company Number: JP-009507513-1208JPN001414

PATIENT

DRUGS (3)
  1. REBETOL [Suspect]
     Route: 048
     Dates: start: 20120718
  2. TELAVIC [Suspect]
     Indication: HEPATITIS C
     Route: 048
     Dates: start: 20120718, end: 20120720
  3. PEG-INTRON [Suspect]
     Route: 058
     Dates: start: 20120718

REACTIONS (2)
  - RASH [None]
  - RENAL DISORDER [None]
